FAERS Safety Report 5080055-4 (Version None)
Quarter: 2006Q3

REPORT INFORMATION
  Report Type: 
  Country: None (occurrence: None)
  Receive Date: 20060810
  Receipt Date: 20060728
  Transmission Date: 20061208
  Serious: Yes (Hospitalization, Disabling, Other)
  Sender: FDA-Public Use
  Company Number: 2006094363

PATIENT
  Age: 49 Year
  Sex: Female
  Weight: 68.0396 kg

DRUGS (7)
  1. NEURONTIN [Suspect]
     Indication: COMPLEX REGIONAL PAIN SYNDROME
     Dosage: 900 MG (300 MG, 3 IN 1 D), UNKNOWN
     Route: 065
     Dates: start: 19970101
  2. CELEBREX [Suspect]
     Indication: ARTHRITIS
     Dates: start: 19990101
  3. DILANTIN [Suspect]
     Indication: DRUG USE FOR UNKNOWN INDICATION
  4. BACLOFEN [Suspect]
     Indication: DRUG USE FOR UNKNOWN INDICATION
  5. OXYCONTIN [Suspect]
     Indication: DRUG USE FOR UNKNOWN INDICATION
  6. ALL OTHER THERAPEUTIC PRODUCTS (ALL OTHER THERAPEUTIC PRODUCTS) [Suspect]
     Indication: DRUG USE FOR UNKNOWN INDICATION
  7. RELAFEN [Concomitant]

REACTIONS (9)
  - ARTHRITIS [None]
  - COMA [None]
  - DIVERTICULITIS [None]
  - IATROGENIC INJURY [None]
  - INCORRECT DOSE ADMINISTERED [None]
  - MEMORY IMPAIRMENT [None]
  - PARTIAL SEIZURES [None]
  - SUICIDE ATTEMPT [None]
  - TREATMENT NONCOMPLIANCE [None]
